FAERS Safety Report 7966195-8 (Version None)
Quarter: 2011Q4

REPORT INFORMATION
  Report Type: 
  Country: None (occurrence: None)
  Receive Date: 20111208
  Receipt Date: 20111129
  Transmission Date: 20120403
  Serious: Yes (Other)
  Sender: FDA-Public Use
  Company Number: PHHY2011JP098074

PATIENT
  Sex: Male
  Weight: 57 kg

DRUGS (3)
  1. XYLOCAINE [Concomitant]
     Indication: ANAESTHESIA PROCEDURE
     Dosage: 5 ML, UNK
     Dates: start: 20111031, end: 20111031
  2. PROCTOSEDYL [Concomitant]
     Indication: HAEMORRHOIDS
     Dosage: 2 G, UNK
     Dates: start: 20111031, end: 20111031
  3. VOLTAREN [Suspect]
     Indication: POSTOPERATIVE ANALGESIA
     Dosage: 1 DF, UNK
     Route: 054
     Dates: start: 20111031, end: 20111031

REACTIONS (7)
  - SHOCK [None]
  - POOR VENOUS ACCESS [None]
  - HYPOTENSION [None]
  - BLOOD PRESSURE SYSTOLIC INCREASED [None]
  - RADIAL PULSE ABNORMAL [None]
  - MALAISE [None]
  - PALLOR [None]
